FAERS Safety Report 6408334-6 (Version None)
Quarter: 2009Q4

REPORT INFORMATION
  Report Type: 
  Country: None (occurrence: None)
  Receive Date: 20091021
  Receipt Date: 20091009
  Transmission Date: 20100525
  Serious: Yes (Hospitalization)
  Sender: FDA-Public Use
  Company Number: PHHY2009FR43950

PATIENT
  Sex: Female

DRUGS (11)
  1. LAMISIL [Suspect]
     Indication: ERYSIPELAS
     Dosage: UNK
     Route: 048
     Dates: start: 20080918, end: 20080919
  2. AUGMENTIN [Suspect]
     Indication: ERYSIPELAS
     Dosage: UNK
     Route: 048
     Dates: start: 20080918, end: 20080919
  3. PYOSTACINE [Suspect]
     Indication: CONDITION AGGRAVATED
     Dosage: UNK
     Route: 048
     Dates: start: 20080919, end: 20080920
  4. ENALAPRIL MALEATE [Concomitant]
  5. HYDROCHLOROTHIAZIDE [Concomitant]
     Dosage: UNK
  6. MEDIATENSYL [Concomitant]
     Dosage: UNK
  7. TOPALGIC [Concomitant]
     Dosage: UNK
  8. ATARAX [Concomitant]
     Dosage: UNK
  9. OMEPRAZOLE [Concomitant]
     Dosage: UNK
  10. FENOFIBRATE [Concomitant]
  11. DOLIPRANE [Concomitant]
     Dosage: UNK

REACTIONS (9)
  - ACUTE GENERALISED EXANTHEMATOUS PUSTULOSIS [None]
  - AGRANULOCYTOSIS [None]
  - CARBON DIOXIDE INCREASED [None]
  - DERMATITIS BULLOUS [None]
  - DERMATITIS CONTACT [None]
  - DRUG RASH WITH EOSINOPHILIA AND SYSTEMIC SYMPTOMS [None]
  - HYPOXIA [None]
  - RASH MACULO-PAPULAR [None]
  - RENAL FAILURE ACUTE [None]
